FAERS Safety Report 6140025-1 (Version None)
Quarter: 2009Q1

REPORT INFORMATION
  Report Type: 
  Country: None (occurrence: None)
  Receive Date: 20090330
  Receipt Date: 20090330
  Transmission Date: 20090719
  Serious: Yes (Hospitalization)
  Sender: FDA-Public Use
  Company Number: None

PATIENT
  Age: 60 Year
  Sex: Male

DRUGS (2)
  1. ENOXAPARIN SODIUM [Suspect]
     Indication: ATRIAL FIBRILLATION
     Dates: start: 20080901, end: 20080925
  2. WARFARIN SODIUM [Suspect]
     Dates: start: 20080901, end: 20080925

REACTIONS (5)
  - ABDOMINAL HERNIA [None]
  - CONTUSION [None]
  - ECCHYMOSIS [None]
  - FEELING OF BODY TEMPERATURE CHANGE [None]
  - FLATULENCE [None]
